FAERS Safety Report 19873776 (Version 1)
Quarter: 2021Q3

REPORT INFORMATION
  Report Type: Spontaneous
  Country: RU (occurrence: RU)
  Receive Date: 20210923
  Receipt Date: 20210923
  Transmission Date: 20211014
  Serious: Yes (Other)
  Sender: FDA-Public Use
  Company Number: RU-ASTRAZENECA-2021A733297

PATIENT
  Age: 32 Year
  Sex: Female
  Weight: 108 kg

DRUGS (3)
  1. PULMICORT TURBUHALER [Suspect]
     Active Substance: BUDESONIDE
     Indication: ASTHMA
     Dosage: DOSAGE 200 MKG/DOSE, SINGLE DOSE ? 400 MCG, FREQUENCY ? 2 TIMES A DAY
     Route: 055
     Dates: start: 20201109, end: 20201210
  2. FORMISONID [Suspect]
     Active Substance: BUDESONIDE\FORMOTEROL FUMARATE DIHYDRATE
     Indication: ASTHMA
     Dosage: 160+4.5 MCG/DOSE, SINGLE DOSE ? 320+9 MCG, FREQUENCY ? 2 TIMES PER
     Route: 065
     Dates: start: 20200906, end: 20201006
  3. DUORESP SPIROMAX [Suspect]
     Active Substance: BUDESONIDE\FORMOTEROL
     Indication: ASTHMA
     Dosage: 160+4.5 MCG/DOSE, SINGLE DOSE ? 320+9 MCG, FREQUENCY ? 2 TIMES PER DAY
     Route: 065
     Dates: start: 20201007, end: 20201108

REACTIONS (1)
  - Asthma [Recovering/Resolving]

NARRATIVE: CASE EVENT DATE: 20200906
